FAERS Safety Report 7454513-9 (Version None)
Quarter: 2011Q2

REPORT INFORMATION
  Report Type: 
  Country: None (occurrence: None)
  Receive Date: 20110503
  Receipt Date: 20110420
  Transmission Date: 20111010
  Serious: No
  Sender: FDA-Public Use
  Company Number: PHHY2011US09489

PATIENT
  Sex: Female

DRUGS (14)
  1. TASIGNA [Suspect]
     Dosage: 150 MG, 4 TIMES A DAY
     Route: 048
  2. MOBIC [Concomitant]
     Dosage: 15 MG, QD
     Route: 048
  3. PROTONIX [Concomitant]
     Dosage: 20 MG, BID
     Route: 048
  4. ELAVIL [Concomitant]
     Dosage: 20 MG, AT BED TIME
     Route: 048
  5. TOPROL-XL [Concomitant]
     Dosage: 100 MG, BID
     Route: 048
  6. AVALIDE [Concomitant]
     Dosage: 300-25 MG  QD
     Route: 048
  7. DITROPAN [Concomitant]
     Dosage: 15 MG, QD
     Route: 048
  8. NORVASC [Concomitant]
     Dosage: 10 MG, QD
     Route: 048
  9. CALCIUM WITH VITAMIN D [Concomitant]
     Dosage: UNK
  10. MULTI-VITAMINS [Concomitant]
     Dosage: UNK
  11. FOSAMAX [Concomitant]
     Dosage: 70 MG, QW
     Route: 048
  12. ZYRTEC [Concomitant]
     Dosage: 10 MG, AT NIGHT
     Route: 048
  13. XYREM [Concomitant]
     Dosage: 10 MG, QD AT NIGHT BED TIME
     Route: 048
  14. SLOW-FE [Concomitant]
     Dosage: 160 MG, BID

REACTIONS (3)
  - DERMATITIS CONTACT [None]
  - RASH [None]
  - PRURITUS [None]
